FAERS Safety Report 9279532 (Version 1)
Quarter: 2013Q2

REPORT INFORMATION
  Report Type: Spontaneous
  Country: US (occurrence: US)
  Receive Date: 20130509
  Receipt Date: 20130509
  Transmission Date: 20140414
  Serious: Yes (Hospitalization)
  Sender: FDA-Public Use
  Company Number: US-AMGEN-USASP2013031784

PATIENT
  Age: 54 Year
  Sex: Male

DRUGS (2)
  1. ENBREL [Suspect]
     Indication: RHEUMATOID ARTHRITIS
     Dosage: 50 MG, QWK
     Dates: start: 2009, end: 201304
  2. METHOTREXATE [Concomitant]
     Dosage: 3 TABLETS, 2.5 MG, QWK
     Dates: start: 1975

REACTIONS (11)
  - Upper limb fracture [Recovered/Resolved]
  - Dysuria [Recovered/Resolved]
  - Musculoskeletal pain [Not Recovered/Not Resolved]
  - Arthralgia [Not Recovered/Not Resolved]
  - Chondropathy [Not Recovered/Not Resolved]
  - Local swelling [Unknown]
  - Joint swelling [Unknown]
  - Ear pain [Not Recovered/Not Resolved]
  - Rhinorrhoea [Unknown]
  - Rheumatoid arthritis [Recovered/Resolved]
  - Sinusitis [Not Recovered/Not Resolved]
